FAERS Safety Report 5827609-2 (Version None)
Quarter: 2008Q3

REPORT INFORMATION
  Report Type: 
  Country: None (occurrence: None)
  Receive Date: 20080730
  Receipt Date: 20080708
  Transmission Date: 20090109
  Serious: No
  Sender: FDA-Public Use
  Company Number: US-BOEHRINGER INGELHEIM GMBH, GERMANY-2008-BP-08692BP

PATIENT
  Sex: Female

DRUGS (6)
  1. SPIRIVA [Suspect]
     Indication: CHRONIC OBSTRUCTIVE PULMONARY DISEASE
     Dates: start: 20070701, end: 20070928
  2. ATROVENT HFA [Concomitant]
     Indication: DYSPNOEA
  3. COMBIVENT [Concomitant]
     Indication: DYSPNOEA
  4. DUONEB [Concomitant]
  5. PREDNISONE [Concomitant]
     Dosage: 15-20 ALTERNATE
  6. OXYGEN [Concomitant]

REACTIONS (1)
  - DYSPNOEA [None]
